FAERS Safety Report 5594679-9 (Version None)
Quarter: 2007Q4

REPORT INFORMATION
  Report Type: 
  Country: None (occurrence: None)
  Receive Date: 20071218
  Receipt Date: 20070820
  Transmission Date: 20080405
  Serious: Yes (Hospitalization, Other)
  Sender: FDA-Public Use
  Company Number: 07-001719

PATIENT
  Age: 40 Year
  Sex: Female
  Weight: 54.9 kg

DRUGS (1)
  1. LOESTRIN 24 FE [Suspect]
     Indication: CONTRACEPTION
     Dosage: 20/1000 UG, QD, ORAL
     Route: 048
     Dates: start: 20061201, end: 20070801

REACTIONS (2)
  - CEREBROVASCULAR ACCIDENT [None]
  - COAGULATION FACTOR VIII LEVEL INCREASED [None]
